FAERS Safety Report 5224029-9 (Version None)
Quarter: 2007Q1

REPORT INFORMATION
  Report Type: 
  Country: None (occurrence: None)
  Receive Date: 20070130
  Receipt Date: 20070119
  Transmission Date: 20070707
  Serious: Yes (Life-Threatening, Hospitalization)
  Sender: FDA-Public Use
  Company Number: FR-ROCHE-479576

PATIENT
  Age: 71 Year
  Sex: Female

DRUGS (3)
  1. XELODA [Suspect]
     Indication: ADENOCARCINOMA
     Route: 065
     Dates: start: 20061121
  2. EPIRUBICIN [Concomitant]
     Indication: ADENOCARCINOMA
     Route: 065
     Dates: start: 20061121
  3. OXALIPLATIN [Concomitant]
     Indication: ADENOCARCINOMA
     Dosage: REPORTED AS A REDUCED DOSAGE
     Route: 065

REACTIONS (7)
  - HYPOALBUMINAEMIA [None]
  - HYPOTENSION [None]
  - LEUKOPENIA [None]
  - PROTEIN-LOSING GASTROENTEROPATHY [None]
  - SEPTIC SHOCK [None]
  - SKIN TOXICITY [None]
  - THROMBOCYTOPENIA [None]
